FAERS Safety Report 16590927 (Version 1)
Quarter: 2019Q3

REPORT INFORMATION
  Report Type: Spontaneous
  Country: DE (occurrence: DE)
  Receive Date: 20190718
  Receipt Date: 20190718
  Transmission Date: 20191004
  Serious: Yes (Hospitalization)
  Sender: FDA-Public Use
  Company Number: DE-PFIZER INC-2019302555

PATIENT
  Age: 40 Year
  Sex: Female
  Weight: 56 kg

DRUGS (14)
  1. FLUOROURACIL. [Suspect]
     Active Substance: FLUOROURACIL
     Dosage: 2800 MG/M2
     Route: 042
  2. AFLIBERCEPT [Suspect]
     Active Substance: AFLIBERCEPT
     Dosage: 4 MG/KG, UNK
     Route: 042
  3. DEXAMETHASONE. [Concomitant]
     Active Substance: DEXAMETHASONE
     Dosage: 8 MG,ACCORDING TO PLAN, TABLETS
     Route: 048
  4. HELLEBORUS EXTRACT [Concomitant]
     Dosage: NK NK, NK, AMPULS
     Route: 048
  5. LOPERAMID [Concomitant]
     Active Substance: LOPERAMIDE
     Dosage: 2 MG, AS NEEDED
     Route: 048
  6. VITIS COMP [Concomitant]
     Dosage: 20|40|20|40 MG, 1-1-1-0, TABLET
     Route: 048
  7. ESCITALOPRAM [Concomitant]
     Active Substance: ESCITALOPRAM OXALATE
     Dosage: 20 MG, 1-0-0-0
     Route: 048
  8. SANCUSO [Concomitant]
     Active Substance: GRANISETRON
     Dosage: 3.1 MG, OVER 24 H, PATCH TRANSDERMAL
     Route: 062
  9. OXALIPLATIN. [Suspect]
     Active Substance: OXALIPLATIN
     Dosage: 50 MG/M2
     Route: 042
  10. VISCUM ALBUM EXTRACT [Concomitant]
     Dosage: 0.2 , 1-1-1-0 GTT
     Route: 048
  11. CALCIUM LEVOFOLINATE [Suspect]
     Active Substance: LEVOLEUCOVORIN CALCIUM
     Dosage: 200 MG/M2
     Route: 042
  12. HALOPERIDOL. [Concomitant]
     Active Substance: HALOPERIDOL
     Dosage: 3 GTT, AS NEEDED
     Route: 048
  13. ONDANSETRON [Concomitant]
     Active Substance: ONDANSETRON
     Dosage: 8 MG, ACC TO PLAN, TABS
     Route: 048
  14. NEUPOGEN [Concomitant]
     Active Substance: FILGRASTIM
     Dosage: 48 MIO IU ACC LAB SOLUTION FOR INJECTION/INFUSION
     Route: 042

REACTIONS (6)
  - Pyrexia [Unknown]
  - Abdominal pain lower [Unknown]
  - Headache [Unknown]
  - General physical health deterioration [Unknown]
  - Abdominal pain upper [Unknown]
  - Fatigue [Unknown]
